FAERS Safety Report 18575121 (Version 1)
Quarter: 2020Q4

REPORT INFORMATION
  Report Type: Spontaneous
  Country: EG (occurrence: EG)
  Receive Date: 20201203
  Receipt Date: 20201203
  Transmission Date: 20210114
  Serious: Yes (Hospitalization, Other)
  Sender: FDA-Public Use
  Company Number: EG-009507513-2008EGY003650

PATIENT
  Age: 15 Year
  Sex: Female

DRUGS (5)
  1. AERIUS (DESLORATADINE) [Suspect]
     Active Substance: DESLORATADINE
     Indication: HYPERSENSITIVITY
     Dosage: UNK
     Route: 048
     Dates: end: 2020
  2. CLARITINE [Concomitant]
     Active Substance: LORATADINE
     Indication: URTICARIA
     Dosage: UNK
  3. TRIACTIN [Concomitant]
     Dosage: TABLET BEFORE SLEEP
  4. AERIUS (DESLORATADINE) [Suspect]
     Active Substance: DESLORATADINE
     Indication: URTICARIA
  5. FAMOTIDINE. [Concomitant]
     Active Substance: FAMOTIDINE
     Dosage: TABLET BEFORE SLEEP

REACTIONS (10)
  - Seizure [Recovering/Resolving]
  - Neutropenia [Unknown]
  - Urticaria [Not Recovered/Not Resolved]
  - Lymphocytosis [Unknown]
  - White blood cell count decreased [Unknown]
  - Dizziness [Unknown]
  - Headache [Unknown]
  - Mental disorder [Unknown]
  - Leukopenia [Unknown]
  - Asthenia [Unknown]

NARRATIVE: CASE EVENT DATE: 2020
